FAERS Safety Report 14970033 (Version 1)
Quarter: 2018Q2

REPORT INFORMATION
  Report Type: Spontaneous
  Country: FR (occurrence: FR)
  Receive Date: 20180604
  Receipt Date: 20180604
  Transmission Date: 20180711
  Serious: Yes (Life-Threatening)
  Sender: FDA-Public Use
  Company Number: FR-TEVA-2018-FR-900980

PATIENT
  Age: 54 Year
  Sex: Male
  Weight: 65.5 kg

DRUGS (9)
  1. BLEOMYCIN [Suspect]
     Active Substance: BLEOMYCIN SULFATE
     Indication: HODGKIN^S DISEASE
     Dosage: UNSPECIFIED
     Route: 042
     Dates: start: 201707, end: 201802
  2. CARBAMAZEPINE. [Concomitant]
     Active Substance: CARBAMAZEPINE
     Indication: SCHIZOAFFECTIVE DISORDER
     Dosage: 400 MILLIGRAM DAILY; .
     Route: 048
     Dates: start: 201712
  3. KEPPRA [Concomitant]
     Active Substance: LEVETIRACETAM
     Indication: EPILEPSY
     Dosage: 200 MILLIGRAM DAILY; ????MORNING AND EVENING
     Route: 048
     Dates: start: 2018
  4. SERESTA [Suspect]
     Active Substance: OXAZEPAM
     Indication: ANXIETY
     Dosage: 30 MILLIGRAM DAILY; ????MORNING NOON AND EVENING
     Route: 048
     Dates: start: 201712
  5. INNOHEP [Concomitant]
     Active Substance: TINZAPARIN SODIUM
     Indication: DEEP VEIN THROMBOSIS
     Dosage: .5 ML DAILY; .
     Route: 058
     Dates: start: 201712, end: 201803
  6. DOXORUBICIN [Suspect]
     Active Substance: DOXORUBICIN
     Indication: HODGKIN^S DISEASE
     Dosage: UNSPECIFIED
     Route: 042
     Dates: start: 201707, end: 201802
  7. DACARBAZINE. [Suspect]
     Active Substance: DACARBAZINE
     Indication: HODGKIN^S DISEASE
     Dosage: UNSPECIFIED
     Route: 042
     Dates: start: 201707, end: 201802
  8. VELBE [Suspect]
     Active Substance: VINBLASTINE SULFATE
     Indication: HODGKIN^S DISEASE
     Dosage: UNSPECIFIED
     Route: 042
     Dates: start: 201707, end: 201802
  9. OLANZAPINE. [Concomitant]
     Active Substance: OLANZAPINE
     Indication: HODGKIN^S DISEASE
     Dosage: 5 MILLIGRAM DAILY; .
     Route: 048
     Dates: start: 201712

REACTIONS (2)
  - Lung disorder [Recovered/Resolved]
  - Toxic skin eruption [Recovering/Resolving]

NARRATIVE: CASE EVENT DATE: 20180310
